FAERS Safety Report 9215264 (Version 1)
Quarter: 2013Q2

REPORT INFORMATION
  Report Type: Spontaneous
  Country: ES (occurrence: ES)
  Receive Date: 20130405
  Receipt Date: 20130405
  Transmission Date: 20140414
  Serious: Yes (Other)
  Sender: FDA-Public Use
  Company Number: ES-ASTRAZENECA-2013SE21194

PATIENT
  Sex: Male

DRUGS (3)
  1. VIMOVO [Suspect]
     Indication: SCIATICA
     Route: 048
  2. PARACETAMOL [Concomitant]
  3. METAMIZOL [Concomitant]

REACTIONS (1)
  - Cardiac failure acute [Unknown]
